FAERS Safety Report 22130049 (Version 1)
Quarter: 2023Q1

REPORT INFORMATION
  Report Type: Spontaneous
  Country: CN (occurrence: CN)
  Receive Date: 20230323
  Receipt Date: 20230323
  Transmission Date: 20230417
  Serious: Yes (Other)
  Sender: FDA-Public Use
  Company Number: None

PATIENT
  Age: 40 Year
  Sex: Female
  Weight: 50 kg

DRUGS (4)
  1. CYCLOPHOSPHAMIDE [Suspect]
     Active Substance: CYCLOPHOSPHAMIDE
     Indication: Systemic lupus erythematosus
     Dosage: 0.2 G, QD, CURRENTLY CUMULATIVE 6.6 G SEPARATELY
     Route: 041
     Dates: start: 20230303, end: 20230303
  2. CYCLOPHOSPHAMIDE [Suspect]
     Active Substance: CYCLOPHOSPHAMIDE
     Dosage: 0.4 G, QD,  CURRENTLY CUMULATIVE 6.6 G SEPARATELY
     Route: 041
     Dates: start: 20230305, end: 20230305
  3. CYCLOPHOSPHAMIDE [Suspect]
     Active Substance: CYCLOPHOSPHAMIDE
     Dosage: 0.6 G, QD,  CURRENTLY CUMULATIVE 6.6 G SEPARATELY
     Route: 041
     Dates: start: 20230306, end: 20230306
  4. CYCLOPHOSPHAMIDE [Suspect]
     Active Substance: CYCLOPHOSPHAMIDE
     Dosage: 0.4 G, QD,  CURRENTLY CUMULATIVE 6.6 G SEPARATELY
     Route: 041
     Dates: start: 20230307, end: 20230307

REACTIONS (9)
  - Leukoplakia oral [Unknown]
  - Immunosuppression [Unknown]
  - Tongue disorder [Unknown]
  - Oral herpes [Unknown]
  - Hot flush [Unknown]
  - Pustule [Unknown]
  - Blister [Unknown]
  - Swelling face [Unknown]
  - Fungal infection [Unknown]

NARRATIVE: CASE EVENT DATE: 20230309
